APPROVED DRUG PRODUCT: CLONIDINE HYDROCHLORIDE
Active Ingredient: CLONIDINE HYDROCHLORIDE
Strength: 0.3MG
Dosage Form/Route: TABLET;ORAL
Application: A071785 | Product #001 | TE Code: AB
Applicant: CHARTWELL MOLECULES LLC
Approved: Apr 5, 1988 | RLD: No | RS: No | Type: RX